FAERS Safety Report 12947815 (Version 6)
Quarter: 2017Q4

REPORT INFORMATION
  Report Type: Spontaneous
  Country: AU (occurrence: AU)
  Receive Date: 20161116
  Receipt Date: 20171220
  Transmission Date: 20180320
  Serious: Yes (Other)
  Sender: FDA-Public Use
  Company Number: AU-PFIZER INC-2016528594

PATIENT
  Age: 65 Year
  Sex: Male

DRUGS (3)
  1. GENTAMICIN. [Suspect]
     Active Substance: GENTAMICIN
     Indication: VITRECTOMY
     Dosage: 0.5 ML, 1X/DAY
     Route: 057
  2. ROPIVACAINE [Concomitant]
     Active Substance: ROPIVACAINE
     Indication: VITRECTOMY
     Dosage: 4 ML, UNK
  3. DEXAMETHASONE. [Concomitant]
     Active Substance: DEXAMETHASONE
     Indication: VITRECTOMY
     Dosage: 0.5 ML, UNK
     Route: 057

REACTIONS (4)
  - Retinal toxicity [Unknown]
  - Eye injury [Unknown]
  - Toxicity to various agents [Unknown]
  - Retinal detachment [Unknown]
